FAERS Safety Report 4641463-6 (Version None)
Quarter: 2005Q2

REPORT INFORMATION
  Report Type: 
  Country: None (occurrence: None)
  Receive Date: 20050421
  Receipt Date: 20050331
  Transmission Date: 20051028
  Serious: Yes (Disabling)
  Sender: FDA-Public Use
  Company Number: DE-MERCK-0504DEU00055

PATIENT
  Age: 85 Year
  Sex: Male
  Weight: 80 kg

DRUGS (2)
  1. HYZAAR [Suspect]
     Indication: HYPERTENSION
     Route: 048
     Dates: start: 20000101, end: 20050301
  2. LEVOCETIRIZINE HYDROCHLORIDE [Concomitant]
     Route: 048

REACTIONS (5)
  - INDURATION [None]
  - LIGAMENT DISORDER [None]
  - MYALGIA [None]
  - THROMBOSIS [None]
  - WALKING DISABILITY [None]
